FAERS Safety Report 6377090-2 (Version None)
Quarter: 2009Q3

REPORT INFORMATION
  Report Type: 
  Country: None (occurrence: None)
  Receive Date: 20090925
  Receipt Date: 20090916
  Transmission Date: 20100115
  Serious: Yes (Other)
  Sender: FDA-Public Use
  Company Number: US-ABBOTT-09P-163-0597616-00

PATIENT
  Sex: Female
  Weight: 59.928 kg

DRUGS (2)
  1. SYNTHROID [Suspect]
     Indication: DRUG USE FOR UNKNOWN INDICATION
     Route: 048
     Dates: start: 20090801
  2. SYNTHROID [Suspect]

REACTIONS (5)
  - COUGH [None]
  - DRY MOUTH [None]
  - ERUCTATION [None]
  - NODULE ON EXTREMITY [None]
  - SNEEZING [None]
